FAERS Safety Report 5614405-4 (Version None)
Quarter: 2008Q1

REPORT INFORMATION
  Report Type: 
  Country: None (occurrence: None)
  Receive Date: 20080205
  Receipt Date: 20080124
  Transmission Date: 20080703
  Serious: Yes (Other)
  Sender: FDA-Public Use
  Company Number: FR-PFIZER INC-2008008681

PATIENT
  Age: 20 Year
  Sex: Male

DRUGS (5)
  1. CHANTIX [Suspect]
  2. OLANZAPINE [Concomitant]
  3. TROPATEPINE HYDROCHLORIDE [Concomitant]
  4. DIAZEPAM [Concomitant]
  5. ESPERAL [Concomitant]

REACTIONS (8)
  - BIPOLAR DISORDER [None]
  - FEAR [None]
  - HALLUCINATION, VISUAL [None]
  - INSOMNIA [None]
  - MOOD ALTERED [None]
  - PANIC REACTION [None]
  - PARANOIA [None]
  - PERSECUTORY DELUSION [None]
